FAERS Safety Report 10951073 (Version 1)
Quarter: 2015Q1

REPORT INFORMATION
  Report Type: Spontaneous
  Country: US (occurrence: None)
  Receive Date: 20150226
  Receipt Date: 20150226
  Transmission Date: 20150721
  Serious: Yes (Hospitalization)
  Sender: FDA-Public Use
  Company Number: TPA2008A01950

PATIENT
  Age: 59 Year
  Sex: Female
  Weight: 122.93 kg

DRUGS (10)
  1. DIGOXIN. [Concomitant]
     Active Substance: DIGOXIN
  2. SIMVASTATIN. [Concomitant]
     Active Substance: SIMVASTATIN
  3. REG INSULIN (INSULIN) [Concomitant]
  4. FUROSEMIDE. [Concomitant]
     Active Substance: FUROSEMIDE
  5. NPH INSULIN (INSULIN INJECTION, ISOPHANE) [Concomitant]
  6. WARFARIN [Concomitant]
     Active Substance: WARFARIN
  7. SPIRONOLACTONE. [Concomitant]
     Active Substance: SPIRONOLACTONE
  8. PIOGLITAZONE HYDROCHLORIDE (PIOGLITAZONE HYDROCHLORIDE) [Suspect]
     Active Substance: PIOGLITAZONE HYDROCHLORIDE
     Dosage: 1 IN  1 D
     Route: 048
     Dates: start: 200104, end: 200112
  9. LISINOPRIL. [Concomitant]
     Active Substance: LISINOPRIL
  10. METOPROLOL XL (METOPROLOL) [Concomitant]
     Active Substance: METOPROLOL

REACTIONS (6)
  - Dyspnoea exertional [None]
  - Fatigue [None]
  - Exercise tolerance decreased [None]
  - Weight increased [None]
  - Cardiac failure [None]
  - Oedema [None]

NARRATIVE: CASE EVENT DATE: 200107
